FAERS Safety Report 4892944-1 (Version None)
Quarter: 2006Q1

REPORT INFORMATION
  Report Type: 
  Country: None (occurrence: None)
  Receive Date: 20060126
  Receipt Date: 20060118
  Transmission Date: 20060701
  Serious: Yes (Hospitalization)
  Sender: FDA-Public Use
  Company Number: US-MERCK-0601USA02411

PATIENT
  Age: 72 Year
  Sex: Female
  Weight: 75 kg

DRUGS (4)
  1. VIOXX [Suspect]
     Indication: ARTHRITIS
     Route: 048
     Dates: start: 20010101, end: 20020101
  2. ZESTRIL [Concomitant]
     Route: 065
  3. PEPCID [Concomitant]
     Route: 065
  4. MAXZIDE [Concomitant]
     Route: 065

REACTIONS (15)
  - BURNING SENSATION [None]
  - CARPAL TUNNEL SYNDROME [None]
  - CEREBROVASCULAR ACCIDENT [None]
  - CHEST PAIN [None]
  - DIZZINESS [None]
  - DYSPNOEA [None]
  - FISTULA [None]
  - HYPERTENSION [None]
  - MITRAL VALVE INCOMPETENCE [None]
  - MYOCARDIAL INFARCTION [None]
  - MYOCARDITIS [None]
  - NERVOUSNESS [None]
  - PARKINSON'S DISEASE [None]
  - VENTRICULAR SEPTAL DEFECT ACQUIRED [None]
  - VERTIGO [None]
